FAERS Safety Report 6963431-1 (Version None)
Quarter: 2010Q3

REPORT INFORMATION
  Report Type: 
  Country: None (occurrence: None)
  Receive Date: 20100902
  Receipt Date: 20100823
  Transmission Date: 20110219
  Serious: Yes (Life-Threatening, Disabling)
  Sender: FDA-Public Use
  Company Number: B0643556A

PATIENT
  Sex: Male
  Weight: 55 kg

DRUGS (26)
  1. ARRANON [Suspect]
     Dosage: 1500MGM2 PER DAY
     Route: 042
     Dates: start: 20090309, end: 20090619
  2. PROGRAF [Suspect]
     Dates: start: 20090628, end: 20090711
  3. ONCOVIN [Concomitant]
     Indication: NEOPLASM MALIGNANT
     Dates: start: 20090217, end: 20090303
  4. DAUNOMYCIN [Concomitant]
     Indication: NEOPLASM MALIGNANT
     Dates: start: 20090220, end: 20090222
  5. ENDOXAN [Concomitant]
     Indication: NEOPLASM MALIGNANT
     Dates: start: 20090219, end: 20090219
  6. ENDOXAN [Concomitant]
     Dosage: 560MG PER DAY
     Dates: start: 20090330, end: 20090403
  7. ENDOXAN [Concomitant]
     Dosage: 560MG PER DAY
     Dates: start: 20090430, end: 20090504
  8. LEUNASE [Concomitant]
     Indication: NEOPLASM MALIGNANT
     Dates: start: 20090224, end: 20090301
  9. VEPESID [Concomitant]
     Indication: NEOPLASM MALIGNANT
     Dosage: 130MG PER DAY
     Dates: start: 20090330, end: 20090403
  10. VEPESID [Concomitant]
     Dosage: 130MG PER DAY
     Dates: start: 20090430, end: 20090504
  11. CEFAMEZIN [Concomitant]
     Dates: start: 20090309, end: 20090313
  12. FENTANYL CITRATE [Concomitant]
     Dates: start: 20090309, end: 20090313
  13. ZOSYN [Concomitant]
     Dates: start: 20090415, end: 20090418
  14. PANTOL [Concomitant]
     Dates: start: 20090417, end: 20090420
  15. FRAGMIN [Concomitant]
     Dates: start: 20090619, end: 20090628
  16. COTRIM [Concomitant]
     Route: 048
     Dates: start: 20090309, end: 20090617
  17. ZYLORIC [Concomitant]
     Route: 048
     Dates: start: 20090309, end: 20090617
  18. EVAMYL [Concomitant]
     Route: 048
     Dates: start: 20090309, end: 20090623
  19. KYTRIL [Concomitant]
     Route: 042
     Dates: start: 20090309, end: 20090313
  20. KYTRIL [Concomitant]
     Route: 042
     Dates: start: 20090331, end: 20090404
  21. KYTRIL [Concomitant]
     Route: 042
     Dates: start: 20090508, end: 20090512
  22. KYTRIL [Concomitant]
     Route: 042
     Dates: start: 20090619, end: 20090623
  23. NEUTROGIN [Concomitant]
     Dates: start: 20090406, end: 20090420
  24. NEUTROGIN [Concomitant]
     Dates: start: 20090521, end: 20090525
  25. ATARAX [Concomitant]
     Dates: start: 20090331, end: 20090414
  26. ATARAX [Concomitant]
     Dates: start: 20090512, end: 20090518

REACTIONS (4)
  - ACUTE RESPIRATORY DISTRESS SYNDROME [None]
  - ANAL FISSURE [None]
  - CYSTITIS VIRAL [None]
  - RENAL DISORDER [None]
